FAERS Safety Report 10475568 (Version 1)
Quarter: 2014Q3

REPORT INFORMATION
  Report Type: Spontaneous
  Country: US (occurrence: US)
  Receive Date: 20140925
  Receipt Date: 20140925
  Transmission Date: 20150326
  Serious: No
  Sender: FDA-Public Use
  Company Number: US-GLAXOSMITHKLINE-A1085031A

PATIENT
  Age: 51 Year
  Sex: Female

DRUGS (2)
  1. MEKINIST [Suspect]
     Active Substance: TRAMETINIB DIMETHYL SULFOXIDE
     Indication: MALIGNANT MELANOMA
     Dosage: 2MG UNKNOWN
     Route: 065
     Dates: start: 20140428
  2. TAFINLAR [Suspect]
     Active Substance: DABRAFENIB MESYLATE
     Indication: MALIGNANT MELANOMA
     Dosage: 75MG UNKNOWN
     Route: 065
     Dates: start: 20140428

REACTIONS (2)
  - Musculoskeletal disorder [Unknown]
  - Paraesthesia [Unknown]
